FAERS Safety Report 9609363 (Version 1)
Quarter: 2013Q4

REPORT INFORMATION
  Report Type: Spontaneous
  Country: US (occurrence: None)
  Receive Date: 20131007
  Receipt Date: 20131007
  Transmission Date: 20140711
  Serious: Yes (Hospitalization)
  Sender: FDA-Public Use
  Company Number: None

PATIENT
  Age: 71 Year
  Sex: Male
  Weight: 118.39 kg

DRUGS (6)
  1. ZOLPIDEM [Suspect]
     Indication: INSOMNIA
     Dates: start: 20080101, end: 20130611
  2. LEVOTHYROXINE [Concomitant]
  3. LISINOPRIL/HCTZ [Concomitant]
  4. OMEGA 3 FATTY ACIDS [Concomitant]
  5. SYMBICORT [Concomitant]
  6. CPAP MACHINE [Concomitant]

REACTIONS (2)
  - Road traffic accident [None]
  - Cognitive disorder [None]
